FAERS Safety Report 7410939-0 (Version None)
Quarter: 2011Q2

REPORT INFORMATION
  Report Type: 
  Country: None (occurrence: None)
  Receive Date: 20110405
  Receipt Date: 20110321
  Transmission Date: 20111010
  Serious: Yes (Hospitalization)
  Sender: FDA-Public Use
  Company Number: 2011MA002674

PATIENT
  Age: 3 Month
  Sex: Female

DRUGS (1)
  1. PROPRANOLOL HCL EXTENDED-RELEASE CAPSULES USP, 160MG (AELLC) (PROPRANO [Suspect]
     Indication: HAEMANGIOMA
     Dosage: 1 MG/K;OD

REACTIONS (3)
  - HYPOTENSION [None]
  - HAEMANGIOMA [None]
  - CONDITION AGGRAVATED [None]
